FAERS Safety Report 15440171 (Version 2)
Quarter: 2018Q4

REPORT INFORMATION
  Report Type: Spontaneous
  Country: CH (occurrence: CH)
  Receive Date: 20180928
  Receipt Date: 20181005
  Transmission Date: 20190204
  Serious: Yes (Hospitalization, Other)
  Sender: FDA-Public Use
  Company Number: PHHY2018CH102865

PATIENT
  Age: 73 Year
  Sex: Male

DRUGS (6)
  1. SOLMUCALM [Concomitant]
     Active Substance: ACETYLCYSTEINE\CHLORPHENIRAMINE MALEATE
     Indication: PRODUCT USED FOR UNKNOWN INDICATION
     Dosage: UNK UNK, Q6H
     Route: 048
     Dates: start: 20180910, end: 20180911
  2. LERCANIDIPIN SANDOZ [Concomitant]
     Indication: PRODUCT USED FOR UNKNOWN INDICATION
     Dosage: 10 MG, Q12H
     Route: 048
  3. ZALDIAR [Suspect]
     Active Substance: ACETAMINOPHEN\TRAMADOL HYDROCHLORIDE
     Indication: PROCEDURAL PAIN
     Dosage: 4 DF, QD
     Route: 048
     Dates: start: 20180704, end: 20180910
  4. CO-IRBESARTAN [HYDROCHLOROTHIAZIDE\IRBESARTAN] [Suspect]
     Active Substance: HYDROCHLOROTHIAZIDE\IRBESARTAN
     Indication: HYPERTENSION
     Dosage: 150 MG, Q24H
     Route: 048
     Dates: end: 20180911
  5. CEFUROXIM SANDOZ [Concomitant]
     Indication: PRODUCT USED FOR UNKNOWN INDICATION
     Dosage: 500 MG, Q12H
     Route: 048
     Dates: start: 20180910, end: 20180911
  6. NOVALGIN (METAMIZOLE SODIUM) [Suspect]
     Active Substance: METAMIZOLE SODIUM
     Indication: PROCEDURAL PAIN
     Dosage: 1000 MG, Q6H
     Route: 048
     Dates: start: 20180704, end: 20180910

REACTIONS (7)
  - Hepatic steato-fibrosis [Unknown]
  - Liver injury [Unknown]
  - Hepatocellular injury [Recovering/Resolving]
  - Tendon rupture [Unknown]
  - Primary biliary cholangitis [Unknown]
  - Hepatic steatosis [Unknown]
  - Liver disorder [Recovering/Resolving]

NARRATIVE: CASE EVENT DATE: 201809
